FAERS Safety Report 4900106-4 (Version None)
Quarter: 2006Q1

REPORT INFORMATION
  Report Type: 
  Country: None (occurrence: None)
  Receive Date: 20060131
  Receipt Date: 20060118
  Transmission Date: 20060701
  Serious: Yes (Other)
  Sender: FDA-Public Use
  Company Number: HQWYE431219JAN06

PATIENT
  Age: 22 Year
  Sex: Female
  Weight: 54.48 kg

DRUGS (2)
  1. MINOCIN [Suspect]
     Indication: ACNE
     Dosage: 100 MG DAILY
     Dates: start: 20040701, end: 20050701
  2. MULTIVITAMINS, PLAIN (MULTIVITAMINS, PLAIN ) [Concomitant]

REACTIONS (4)
  - ARTHRALGIA [None]
  - FATIGUE [None]
  - LUPUS-LIKE SYNDROME [None]
  - MYALGIA [None]
